FAERS Safety Report 9543885 (Version 1)
Quarter: 2013Q3

REPORT INFORMATION
  Report Type: Spontaneous
  Country: CH (occurrence: CH)
  Receive Date: 20130923
  Receipt Date: 20130923
  Transmission Date: 20140515
  Serious: Yes (Hospitalization)
  Sender: FDA-Public Use
  Company Number: CH-GLAXOSMITHKLINE-B0924453A

PATIENT
  Age: 7 Day
  Sex: Female
  Weight: 2.6 kg

DRUGS (3)
  1. VALTREX [Suspect]
     Indication: CONGENITAL CYTOMEGALOVIRUS INFECTION
     Dosage: 16MG TWICE PER DAY
     Route: 048
     Dates: start: 201304, end: 20130427
  2. VALCYTE [Suspect]
     Indication: CONGENITAL CYTOMEGALOVIRUS INFECTION
     Dosage: 16MG TWICE PER DAY
     Route: 048
     Dates: start: 20130321
  3. CYMEVENE [Suspect]
     Indication: CONGENITAL CYTOMEGALOVIRUS INFECTION
     Dosage: 6MGK TWICE PER DAY
     Route: 042
     Dates: start: 20130202, end: 20130317

REACTIONS (5)
  - Cytomegalovirus infection [Unknown]
  - Convulsion [Recovering/Resolving]
  - Drug prescribing error [Unknown]
  - Product name confusion [Unknown]
  - Off label use [Unknown]
